FAERS Safety Report 5514701-5 (Version None)
Quarter: 2007Q4

REPORT INFORMATION
  Report Type: 
  Country: None (occurrence: None)
  Receive Date: 20071113
  Receipt Date: 20071108
  Transmission Date: 20080405
  Serious: Yes (Congenital Anomaly)
  Sender: FDA-Public Use
  Company Number: FR-GILEAD-2004-0007737

PATIENT
  Sex: Male

DRUGS (6)
  1. VIREAD [Suspect]
     Indication: HIV INFECTION
     Route: 064
     Dates: start: 20040601, end: 20070720
  2. VIRACEPT [Suspect]
     Indication: HIV INFECTION
     Route: 064
     Dates: start: 20040130, end: 20040720
  3. COMBIVIR [Suspect]
     Indication: HIV INFECTION
     Route: 064
     Dates: start: 20040130, end: 20040601
  4. KALETRA [Suspect]
     Indication: HIV INFECTION
     Route: 064
     Dates: start: 20040601
  5. RETROVIR [Suspect]
     Indication: HIV INFECTION
     Route: 064
     Dates: start: 20040601, end: 20040720
  6. FOLATE [Concomitant]
     Route: 064

REACTIONS (4)
  - ABDOMINAL DISTENSION [None]
  - ABDOMINAL HERNIA [None]
  - CARDIAC MURMUR [None]
  - CRYPTORCHISM [None]
